FAERS Safety Report 7913505-3 (Version None)
Quarter: 2011Q4

REPORT INFORMATION
  Report Type: 
  Country: None (occurrence: None)
  Receive Date: 20111110
  Receipt Date: 20111028
  Transmission Date: 20120403
  Serious: Yes (Disabling)
  Sender: FDA-Public Use
  Company Number: 1000023065

PATIENT
  Age: 47 Year
  Sex: Male
  Weight: 52.5 kg

DRUGS (4)
  1. ROFLUMILAST (ROFLUMILAST) (500 MICROGRAM, TABLETS) [Suspect]
     Dosage: 500 MCG (500 MCG,ONCE),ORAL
     Route: 048
     Dates: start: 20110625, end: 20110625
  2. ROFLUMILAST (ROFLUMILAST) (500 MICROGRAM, TABLETS) [Suspect]
     Dosage: 500 MCG (500 MCG,ONCE),ORAL
     Route: 048
     Dates: start: 20110528, end: 20110528
  3. ROFLUMILAST (ROFLUMILAST) (500 MICROGRAM, TABLETS) [Suspect]
     Dosage: 500 MCG (500 MCG,ONCE),ORAL
     Route: 048
     Dates: start: 20110612, end: 20110612
  4. CEPHRADINE (CEFRADINE) (TABLETS) (CEFRADINE) [Concomitant]

REACTIONS (5)
  - TYMPANIC MEMBRANE SCARRING [None]
  - TINNITUS [None]
  - DEAFNESS NEUROSENSORY [None]
  - SINUSITIS [None]
  - PARANASAL CYST [None]
